FAERS Safety Report 14804121 (Version 9)
Quarter: 2019Q4

REPORT INFORMATION
  Report Type: Report from Study
  Country: CA (occurrence: CA)
  Receive Date: 20180425
  Receipt Date: 20191209
  Transmission Date: 20200122
  Serious: Yes (Other)
  Sender: FDA-Public Use
  Company Number: CA-BRISTOL-MYERS SQUIBB COMPANY-BMS-2017-039365

PATIENT
  Age: 67 Year
  Sex: Female

DRUGS (2)
  1. ABATACEPT [Suspect]
     Active Substance: ABATACEPT
     Indication: POLYARTHRITIS
     Route: 065
  2. ABATACEPT [Suspect]
     Active Substance: ABATACEPT
     Indication: RHEUMATOID ARTHRITIS
     Dosage: 750 MG, Q4WK
     Route: 042
     Dates: start: 20151216

REACTIONS (12)
  - Abdominal pain [Unknown]
  - Blood pressure increased [Unknown]
  - Arthralgia [Unknown]
  - Bradycardia [Not Recovered/Not Resolved]
  - Wound [Unknown]
  - Headache [Recovering/Resolving]
  - Influenza like illness [Recovered/Resolved]
  - Heart rate increased [Unknown]
  - Hypertension [Not Recovered/Not Resolved]
  - Nasopharyngitis [Recovering/Resolving]
  - Blood pressure fluctuation [Unknown]
  - Blood pressure decreased [Recovered/Resolved]

NARRATIVE: CASE EVENT DATE: 20170426
